FAERS Safety Report 7793658-0 (Version None)
Quarter: 2011Q4

REPORT INFORMATION
  Report Type: 
  Country: None (occurrence: None)
  Receive Date: 20111003
  Receipt Date: 20101220
  Transmission Date: 20120403
  Serious: No
  Sender: FDA-Public Use
  Company Number: US-BAYER-2010-008615

PATIENT
  Age: 66 Year
  Sex: Male

DRUGS (4)
  1. LEVITRA [Suspect]
     Dosage: UNK, ONCE
     Route: 048
     Dates: start: 20100101
  2. SIMVASTATIN [Concomitant]
     Route: 048
  3. ACEBUTOLOL [Suspect]
     Dosage: UNK
     Route: 048
     Dates: start: 20090101
  4. DRONEDARONE HCL [Suspect]
     Indication: ATRIAL FIBRILLATION
     Dosage: 400 MG, BID
     Route: 048
     Dates: start: 20101001

REACTIONS (1)
  - CHEST DISCOMFORT [None]
